FAERS Safety Report 7823510-3 (Version None)
Quarter: 2011Q4

REPORT INFORMATION
  Report Type: 
  Country: None (occurrence: None)
  Receive Date: 20111019
  Receipt Date: 20111014
  Transmission Date: 20120403
  Serious: Yes (Other)
  Sender: FDA-Public Use
  Company Number: JP-PFIZER INC-2011247072

PATIENT
  Age: 60 Year
  Sex: Female

DRUGS (2)
  1. LASIX [Concomitant]
     Dosage: UNK
  2. LYRICA [Suspect]
     Dosage: 75 MG, 3X/DAY
     Route: 048
     Dates: start: 20110101

REACTIONS (1)
  - BLOOD PRESSURE INCREASED [None]
